FAERS Safety Report 23810641 (Version 2)
Quarter: 2024Q3

REPORT INFORMATION
  Report Type: Spontaneous
  Country: JP (occurrence: JP)
  Receive Date: 20240502
  Receipt Date: 20240724
  Transmission Date: 20241016
  Serious: Yes (Death, Life-Threatening, Hospitalization, Other)
  Sender: BRISTOL MYERS SQUIBB
  Company Number: JP-ONO-2024JP009055

PATIENT
  Age: 52 Year
  Sex: Male

DRUGS (1)
  1. OPDIVO [Suspect]
     Active Substance: NIVOLUMAB
     Indication: Oesophageal carcinoma
     Dosage: UNK
     Route: 041
     Dates: start: 20230921, end: 20240208

REACTIONS (7)
  - Shock symptom [Unknown]
  - Immune-mediated lung disease [Fatal]
  - Respiration abnormal [Unknown]
  - Pyrexia [Unknown]
  - Hypophagia [Unknown]
  - Malaise [Unknown]
  - Asthenia [Unknown]

NARRATIVE: CASE EVENT DATE: 20240229
